FAERS Safety Report 19732340 (Version 1)
Quarter: 2021Q3

REPORT INFORMATION
  Report Type: Spontaneous
  Country: ES (occurrence: ES)
  Receive Date: 20210822
  Receipt Date: 20210822
  Transmission Date: 20211014
  Serious: Yes (Other)
  Sender: FDA-Public Use
  Company Number: ES-TEVA-2021-ES-1942599

PATIENT
  Age: 71 Year
  Sex: Female
  Weight: 80 kg

DRUGS (1)
  1. GABAPENTINA 300 MG 90 CAPSULAS [Suspect]
     Active Substance: GABAPENTIN
     Indication: BACK PAIN
     Dosage: 300 MG
     Route: 048
     Dates: start: 20210701

REACTIONS (2)
  - Tongue oedema [Recovering/Resolving]
  - Oropharyngeal oedema [Recovering/Resolving]

NARRATIVE: CASE EVENT DATE: 20210727
